FAERS Safety Report 9607241 (Version 1)
Quarter: 2013Q4

REPORT INFORMATION
  Report Type: Spontaneous
  Country: SE (occurrence: SE)
  Receive Date: 20131009
  Receipt Date: 20131009
  Transmission Date: 20140711
  Serious: Yes (Other)
  Sender: FDA-Public Use
  Company Number: SE-009507513-1310SWE002716

PATIENT
  Age: 36 Year
  Sex: Male

DRUGS (3)
  1. MIRTAZAPINE [Suspect]
     Dosage: 150 MG, UNK
     Route: 048
     Dates: start: 20130626, end: 20130626
  2. ATARAX (ALPRAZOLAM) [Suspect]
     Dosage: UNK
     Route: 048
     Dates: start: 20130626, end: 20130626
  3. STILNOCT [Suspect]
     Dosage: 100 MG, UNK
     Route: 048
     Dates: start: 20130626, end: 20130626

REACTIONS (2)
  - Toxicity to various agents [Unknown]
  - Suicide attempt [Unknown]
